FAERS Safety Report 23641718 (Version 1)
Quarter: 2024Q1

REPORT INFORMATION
  Report Type: Spontaneous
  Country: US (occurrence: None)
  Receive Date: 20240318
  Receipt Date: 20240318
  Transmission Date: 20240410
  Serious: No
  Sender: FDA-Public Use
  Company Number: 2024A062807

PATIENT
  Sex: Female

DRUGS (1)
  1. SAPHNELO [Suspect]
     Active Substance: ANIFROLUMAB\ANIFROLUMAB-FNIA
     Indication: Systemic lupus erythematosus
     Route: 042

REACTIONS (3)
  - Fatigue [Unknown]
  - Arthralgia [Unknown]
  - Nausea [Unknown]
